FAERS Safety Report 6054906-0 (Version None)
Quarter: 2009Q1

REPORT INFORMATION
  Report Type: 
  Country: None (occurrence: None)
  Receive Date: 20090128
  Receipt Date: 20090117
  Transmission Date: 20090719
  Serious: Yes (Other)
  Sender: FDA-Public Use
  Company Number: PHHY2009FI01787

PATIENT

DRUGS (1)
  1. FEMAR [Suspect]

REACTIONS (1)
  - VASCULITIS [None]
